FAERS Safety Report 12794480 (Version 2)
Quarter: 2016Q4

REPORT INFORMATION
  Report Type: Spontaneous
  Country: US (occurrence: US)
  Receive Date: 20160929
  Receipt Date: 20161003
  Transmission Date: 20170207
  Serious: Yes (Other)
  Sender: FDA-Public Use
  Company Number: PHHY2016US132094

PATIENT
  Sex: Female

DRUGS (11)
  1. PERTUZUMAB [Suspect]
     Active Substance: PERTUZUMAB
     Indication: FOETAL EXPOSURE DURING PREGNANCY
     Route: 064
  2. ADRIAMYCIN [Suspect]
     Active Substance: DOXORUBICIN HYDROCHLORIDE
     Indication: FOETAL EXPOSURE DURING PREGNANCY
     Route: 064
  3. LAPATINIB [Suspect]
     Active Substance: LAPATINIB
     Indication: FOETAL EXPOSURE DURING PREGNANCY
     Route: 064
  4. TEMOZOLOMIDE. [Suspect]
     Active Substance: TEMOZOLOMIDE
     Indication: FOETAL EXPOSURE DURING PREGNANCY
     Dosage: UNK
     Route: 064
  5. TRASTUZUMAB [Suspect]
     Active Substance: TRASTUZUMAB
     Indication: FOETAL EXPOSURE DURING PREGNANCY
     Route: 064
  6. DECADRAN [Suspect]
     Active Substance: DEXAMETHASONE
     Indication: FOETAL EXPOSURE DURING PREGNANCY
     Route: 064
  7. DOCETAXEL. [Suspect]
     Active Substance: DOCETAXEL
     Indication: FOETAL EXPOSURE DURING PREGNANCY
     Route: 064
  8. CAPECITABINE. [Suspect]
     Active Substance: CAPECITABINE
     Indication: FOETAL EXPOSURE DURING PREGNANCY
     Dosage: UNK
     Route: 064
  9. CARBOPLATIN. [Suspect]
     Active Substance: CARBOPLATIN
     Indication: FOETAL EXPOSURE DURING PREGNANCY
     Dosage: UNK
     Route: 064
  10. CYCLOPHOSPHAMIDE. [Suspect]
     Active Substance: CYCLOPHOSPHAMIDE
     Indication: FOETAL EXPOSURE DURING PREGNANCY
     Route: 064
  11. 5-FLUOROURACIL [Suspect]
     Active Substance: FLUOROURACIL
     Indication: FOETAL EXPOSURE DURING PREGNANCY
     Route: 064

REACTIONS (3)
  - Premature baby [Unknown]
  - Foetal growth restriction [Unknown]
  - Foetal exposure during pregnancy [Unknown]
